FAERS Safety Report 6580514-9 (Version None)
Quarter: 2010Q1

REPORT INFORMATION
  Report Type: 
  Country: None (occurrence: None)
  Receive Date: 20100212
  Receipt Date: 20100202
  Transmission Date: 20100710
  Serious: Yes (Hospitalization)
  Sender: FDA-Public Use
  Company Number: US-WYE-H13484610

PATIENT
  Sex: Female

DRUGS (3)
  1. IBUPROFEN [Suspect]
     Dosage: 45 PILLS (OVERDOSE AMOUNT)
     Route: 048
     Dates: start: 20090122, end: 20090122
  2. DEXTROMETHORPHAN HYDROBROMIDE/DOXYLAMINE SUCCINATE/EPHEDRINE SULFATE/E [Suspect]
     Dosage: 3/4 BOTTLE (OVERDOSE AMOUNT)
     Route: 048
     Dates: start: 20090122, end: 20090122
  3. DIPHENHYDRAMINE/PARACETAMOL [Suspect]
     Dosage: 3 PILLS (OVERDOSE AMOUNT)
     Route: 048
     Dates: start: 20090122, end: 20090122

REACTIONS (5)
  - ABDOMINAL PAIN UPPER [None]
  - INTENTIONAL SELF-INJURY [None]
  - OVERDOSE [None]
  - SUICIDE ATTEMPT [None]
  - VOMITING [None]
